FAERS Safety Report 8561043-X (Version None)
Quarter: 2012Q3

REPORT INFORMATION
  Report Type: 
  Country: None (occurrence: None)
  Receive Date: 20120802
  Receipt Date: 20110914
  Transmission Date: 20120928
  Serious: No
  Sender: FDA-Public Use
  Company Number: US-BRISTOL-MYERS SQUIBB COMPANY-16067787

PATIENT
  Age: 21 Year
  Sex: Female

DRUGS (4)
  1. REYATAZ [Suspect]
     Dosage: SATRTED 2 WEEKS AGO
     Dates: start: 20110101
  2. TRUVADA [Suspect]
     Dosage: SATRTED 2 WEEKS AGO
     Dates: start: 20110101
  3. COCAINE [Suspect]
  4. RITONAVIR [Suspect]
     Dosage: SATRTED 2 WEEKS AGO
     Dates: start: 20110101

REACTIONS (1)
  - AGITATION [None]
